FAERS Safety Report 22043799 (Version 1)
Quarter: 2023Q1

REPORT INFORMATION
  Report Type: Spontaneous
  Country: CN (occurrence: CN)
  Receive Date: 20230228
  Receipt Date: 20230228
  Transmission Date: 20230417
  Serious: Yes (Other)
  Sender: FDA-Public Use
  Company Number: CN-SA-SAC20230224001282

PATIENT
  Age: 80 Year
  Sex: Female
  Weight: 52 kg

DRUGS (4)
  1. INSULIN GLARGINE [Suspect]
     Active Substance: INSULIN GLARGINE
     Indication: Type 2 diabetes mellitus
     Dosage: 8 IU, QD BEFORE DINNER
     Route: 058
     Dates: start: 20230208, end: 20230218
  2. INSULIN GLARGINE [Suspect]
     Active Substance: INSULIN GLARGINE
     Dosage: 4 IU, QD BEFORE DINNER
     Route: 058
     Dates: start: 20230219
  3. INSULIN LISPRO [Suspect]
     Active Substance: INSULIN LISPRO
     Indication: Type 2 diabetes mellitus
     Dosage: 6 IU IN THE MORNING, 4 IU AT NOON AND 3 IU IN THE EVENING BEFORE MEALS
     Route: 058
     Dates: start: 20230208, end: 20230218
  4. INSULIN LISPRO [Suspect]
     Active Substance: INSULIN LISPRO
     Dosage: 3 IU, TID BEFORE MEALS
     Route: 058
     Dates: start: 20230219

REACTIONS (3)
  - Starvation [Recovered/Resolved]
  - Hypoglycaemia [Recovered/Resolved]
  - Palpitations [Recovered/Resolved]

NARRATIVE: CASE EVENT DATE: 20230219
